FAERS Safety Report 7369005-5 (Version None)
Quarter: 2011Q1

REPORT INFORMATION
  Report Type: 
  Country: None (occurrence: None)
  Receive Date: 20110323
  Receipt Date: 20091120
  Transmission Date: 20110831
  Serious: Yes (Death, Other)
  Sender: FDA-Public Use
  Company Number: US-BAYER-200940974NA

PATIENT
  Sex: Female
  Weight: 61.224 kg

DRUGS (15)
  1. DEMADEX [Concomitant]
     Dosage: 40 MG/24HR, UNK
     Route: 048
     Dates: start: 19990202, end: 19990804
  2. CAPTOPRIL [Concomitant]
     Dosage: 50 MG, BID
     Route: 048
     Dates: start: 19981109, end: 19990804
  3. GLIPIZIDE [Concomitant]
     Indication: DIABETES MELLITUS
     Dosage: 2.5 MG/24HR, UNK
     Route: 048
     Dates: end: 19990804
  4. LASIX [Concomitant]
     Dosage: 80 MG, BID
     Route: 048
     Dates: start: 19980911, end: 19990804
  5. ZOCOR [Concomitant]
     Dosage: 20 MG, UNK
     Route: 048
     Dates: start: 19990603, end: 19990804
  6. TOPROL-XL [Concomitant]
     Dosage: 50 MG/24HR, UNK
     Route: 048
     Dates: start: 19990618, end: 19990804
  7. MANNITOL [Concomitant]
     Dosage: 50 MG, UNK
     Route: 042
     Dates: start: 19990804, end: 19990804
  8. HEPARIN [Concomitant]
     Dosage: UNK
     Route: 042
     Dates: start: 19990715, end: 19990804
  9. DOPAMINE [Concomitant]
     Dosage: UNK
     Route: 042
     Dates: start: 19990804, end: 19990804
  10. TRASYLOL [Suspect]
     Indication: CORONARY ARTERY BYPASS
     Dosage: UNK
     Dates: start: 19990801
  11. INSULIN [Concomitant]
     Dosage: 15 U, UNK
     Route: 042
     Dates: start: 19990804, end: 19990804
  12. IMDUR [Concomitant]
     Indication: CHEST PAIN
     Dosage: 60 MG, TID
     Route: 048
     Dates: start: 19990308, end: 19990804
  13. DOBUTAMINE [Concomitant]
     Dosage: UNK
     Route: 042
     Dates: start: 19990804, end: 19990804
  14. PROTAMINE SULFATE [Concomitant]
     Dosage: 5 ML, UNK
     Route: 042
     Dates: start: 19990804, end: 19990804
  15. PLENDIL [Concomitant]
     Indication: CARDIOVASCULAR DISORDER
     Dosage: 5 MG/24HR, UNK
     Route: 048
     Dates: start: 19980202, end: 19990804

REACTIONS (11)
  - ANXIETY [None]
  - RENAL INJURY [None]
  - ANHEDONIA [None]
  - DISABILITY [None]
  - INJURY [None]
  - UNEVALUABLE EVENT [None]
  - MULTI-ORGAN FAILURE [None]
  - FEAR [None]
  - DEPRESSION [None]
  - RENAL FAILURE [None]
  - PAIN [None]
